FAERS Safety Report 6774063-2 (Version None)
Quarter: 2010Q2

REPORT INFORMATION
  Report Type: 
  Country: None (occurrence: None)
  Receive Date: 20100616
  Receipt Date: 20100616
  Transmission Date: 20101027
  Serious: Yes (Other)
  Sender: FDA-Public Use
  Company Number: None

PATIENT
  Age: 42 Year
  Sex: Female
  Weight: 90.7194 kg

DRUGS (2)
  1. CEPHALEXIN [Suspect]
     Indication: RHINOPLASTY
     Dosage: I CAPSULE 4 TIMES A DAY PO
     Route: 048
     Dates: start: 20100603, end: 20100609
  2. CEPHALEXIN [Suspect]
     Indication: SURGERY
     Dosage: I CAPSULE 4 TIMES A DAY PO
     Route: 048
     Dates: start: 20100603, end: 20100609

REACTIONS (4)
  - DRUG HYPERSENSITIVITY [None]
  - DYSPNOEA [None]
  - HEADACHE [None]
  - PAIN [None]
